FAERS Safety Report 6611027-3 (Version None)
Quarter: 2010Q1

REPORT INFORMATION
  Report Type: 
  Country: None (occurrence: None)
  Receive Date: 20100222
  Receipt Date: 20100205
  Transmission Date: 20100710
  Serious: Yes (Hospitalization)
  Sender: FDA-Public Use
  Company Number: THQ2010A00301

PATIENT
  Age: 73 Year
  Sex: Male

DRUGS (10)
  1. LANSOPRAZOLE [Suspect]
     Dosage: PER ORAL
     Route: 048
  2. MEBEVERINE HYDROCHLORIDE [Suspect]
     Dosage: PER ORAL
     Route: 048
  3. VIOXX [Suspect]
     Indication: OSTEOARTHRITIS
     Dosage: 12.5 MG (12.5 MG, 1 IN 1 D) PER ORAL
     Route: 048
     Dates: start: 20020918, end: 20030923
  4. VIOXX [Suspect]
     Indication: PAIN
     Dosage: 12.5 MG (12.5 MG, 1 IN 1 D) PER ORAL
     Route: 048
     Dates: start: 20020918, end: 20030923
  5. ASPIRIN [Concomitant]
  6. ATENOLOL [Concomitant]
  7. CLOPIDOGREL [Concomitant]
  8. FINASTERIDE [Concomitant]
  9. SIMVASTATIN [Concomitant]
  10. PERINDOPRIL [Concomitant]

REACTIONS (5)
  - CORONARY ARTERY OCCLUSION [None]
  - GASTROOESOPHAGEAL REFLUX DISEASE [None]
  - LEFT VENTRICULAR DYSFUNCTION [None]
  - MYOCARDIAL INFARCTION [None]
  - MYOCARDIAL ISCHAEMIA [None]
